FAERS Safety Report 7360687-0 (Version None)
Quarter: 2011Q1

REPORT INFORMATION
  Report Type: 
  Country: None (occurrence: None)
  Receive Date: 20110318
  Receipt Date: 20080820
  Transmission Date: 20110831
  Serious: Yes (Death, Hospitalization, Other)
  Sender: FDA-Public Use
  Company Number: US-BAYER-200839746NA

PATIENT
  Sex: Male
  Weight: 57.596 kg

DRUGS (36)
  1. FRESH FROZEN PLASMA [Concomitant]
     Indication: CORONARY ARTERY BYPASS
     Dosage: 2 UNITS
     Dates: start: 20061019, end: 20061019
  2. WHOLE BLOOD [Concomitant]
     Indication: CORONARY ARTERY BYPASS
     Dosage: 2 UNITS
     Route: 042
     Dates: start: 20061019, end: 20061019
  3. EPINEPHRINE [Concomitant]
     Indication: MITRAL VALVE REPLACEMENT
  4. EPINEPHRINE [Concomitant]
     Indication: INTRA-AORTIC BALLOON PLACEMENT
  5. NEO-SYNEPHRINOL [Concomitant]
     Indication: CORONARY ARTERY BYPASS
     Dosage: TITRATED
     Route: 042
     Dates: start: 20061019, end: 20061019
  6. LOPRESSOR [Concomitant]
     Indication: HYPERTENSION
     Dosage: 25 MG
     Route: 048
     Dates: start: 20061018, end: 20061018
  7. TRASYLOL [Suspect]
     Indication: CORONARY ARTERY BYPASS
     Dosage: 200 ML USED FOR CARDIOPULMONARY BYPASS PRIME VOLUME, 200 CC LOADING DOSE FOLLOWED BY 50 CC PER HOUR
     Route: 042
     Dates: start: 20061019, end: 20061019
  8. HEPARIN [Concomitant]
     Indication: INTRA-AORTIC BALLOON PLACEMENT
  9. PLATELETS [Concomitant]
     Indication: INTRA-AORTIC BALLOON PLACEMENT
  10. MILRINONE [Concomitant]
     Indication: CORONARY ARTERY BYPASS
     Dosage: 0.5KG/KG/HR
     Route: 042
     Dates: start: 20061019, end: 20061019
  11. NEO-SYNEPHRINOL [Concomitant]
     Indication: INTRA-AORTIC BALLOON PLACEMENT
  12. TRASYLOL [Suspect]
     Indication: MITRAL VALVE REPLACEMENT
  13. CEFAZOLIN [Concomitant]
     Indication: INTRA-AORTIC BALLOON PLACEMENT
  14. MILRINONE [Concomitant]
     Indication: INTRA-AORTIC BALLOON PLACEMENT
  15. TRASYLOL [Suspect]
     Indication: INTRA-AORTIC BALLOON PLACEMENT
  16. FRESH FROZEN PLASMA [Concomitant]
     Indication: MITRAL VALVE REPLACEMENT
  17. FRESH FROZEN PLASMA [Concomitant]
     Indication: INTRA-AORTIC BALLOON PLACEMENT
  18. AMIODARONE HCL [Concomitant]
     Indication: CORONARY ARTERY BYPASS
     Dosage: 1MG/KG/HR
     Route: 042
     Dates: start: 20061019, end: 20061019
  19. AMIODARONE HCL [Concomitant]
     Indication: MITRAL VALVE REPLACEMENT
  20. AMIODARONE HCL [Concomitant]
     Indication: INTRA-AORTIC BALLOON PLACEMENT
  21. MILRINONE [Concomitant]
     Indication: MITRAL VALVE REPLACEMENT
  22. CEFAZOLIN [Concomitant]
     Indication: MITRAL VALVE REPLACEMENT
  23. EPINEPHRINE [Concomitant]
     Indication: CORONARY ARTERY BYPASS
     Dosage: 0.5 MCG
     Route: 042
     Dates: start: 20061019, end: 20061019
  24. HEPARIN [Concomitant]
     Indication: MITRAL VALVE REPLACEMENT
  25. WHOLE BLOOD [Concomitant]
     Indication: MITRAL VALVE REPLACEMENT
  26. WHOLE BLOOD [Concomitant]
     Indication: INTRA-AORTIC BALLOON PLACEMENT
  27. PLATELETS [Concomitant]
     Indication: CORONARY ARTERY BYPASS
     Dosage: 6 UINTS
     Route: 042
     Dates: start: 20061019, end: 20061019
  28. CEFAZOLIN [Concomitant]
     Indication: CORONARY ARTERY BYPASS
     Dosage: 2 GMS
     Route: 042
     Dates: start: 20061019, end: 20061019
  29. ASPIRIN [Concomitant]
     Indication: ANTICOAGULANT THERAPY
     Dosage: 325 MG DAILYUNK
     Route: 048
     Dates: end: 20061015
  30. PLATELETS [Concomitant]
     Indication: MITRAL VALVE REPLACEMENT
  31. HEPARIN [Concomitant]
     Indication: CORONARY ARTERY BYPASS
     Dosage: 5000 UNITS
     Route: 042
     Dates: start: 20061019, end: 20061019
  32. NEO-SYNEPHRINOL [Concomitant]
     Indication: MITRAL VALVE REPLACEMENT
  33. TOPROL-XL [Concomitant]
     Indication: BLOOD PRESSURE ABNORMAL
     Dosage: 25 MG DAILY
     Route: 048
     Dates: start: 20061016, end: 20061018
  34. ZOCOR [Concomitant]
     Indication: BLOOD CHOLESTEROL INCREASED
     Dosage: 40 MG DAILY
     Route: 048
     Dates: start: 20061016, end: 20061018
  35. NICOTINE [Concomitant]
     Indication: SMOKING CESSATION THERAPY
     Dosage: 1 DAILY
     Route: 061
     Dates: end: 20061015
  36. PREDNISONE TAB [Concomitant]
     Indication: CHRONIC OBSTRUCTIVE PULMONARY DISEASE
     Dosage: 40 MG X 1 DOSE
     Route: 048
     Dates: end: 20061018

REACTIONS (6)
  - INJURY [None]
  - RENAL FAILURE [None]
  - PAIN [None]
  - DEATH [None]
  - UNEVALUABLE EVENT [None]
  - ANHEDONIA [None]
